FAERS Safety Report 6526917-X (Version None)
Quarter: 2009Q4

REPORT INFORMATION
  Report Type: 
  Country: None (occurrence: None)
  Receive Date: 20091229
  Receipt Date: 20091203
  Transmission Date: 20100525
  Serious: Yes (Disabling)
  Sender: FDA-Public Use
  Company Number: JPI-P-009391

PATIENT
  Age: 44 Year
  Sex: Male

DRUGS (4)
  1. UVOX IR (TABLETS) (FLUVOXAMINE MALEATE) [Suspect]
     Indication: DRUG USE FOR UNKNOWN INDICATION
     Dosage: (150 MG, 1 D), ORAL
     Route: 048
  2. RISPERIDONE [Suspect]
     Indication: DRUG USE FOR UNKNOWN INDICATION
     Dosage: (2 MG, 1 DAY) ORAL
     Route: 048
  3. QUETIAPINE FUMARATE [Suspect]
     Indication: DRUG USE FOR UNKNOWN INDICATION
     Dosage: (175 MG, 1DAY ORAL)
     Route: 048
     Dates: start: 20080601
  4. CYCLOBENZAPRINE [Concomitant]

REACTIONS (9)
  - APHTHOUS STOMATITIS [None]
  - COUGH [None]
  - DRY MOUTH [None]
  - DRY THROAT [None]
  - EJACULATION DISORDER [None]
  - GLOSSITIS [None]
  - GLOSSODYNIA [None]
  - INCREASED UPPER AIRWAY SECRETION [None]
  - SOMNOLENCE [None]
